FAERS Safety Report 8847739 (Version 2)
Quarter: 2012Q4

REPORT INFORMATION
  Report Type: 
  Country: JP (occurrence: JP)
  Receive Date: 20121018
  Receipt Date: 20121224
  Transmission Date: 20130627
  Serious: Yes (Other)
  Sender: FDA-Public Use
  Company Number: JP-009507513-1206USA04419

PATIENT
  Age: 55 Year
  Sex: Female

DRUGS (5)
  1. FOSAPREPITANT DIMEGLUMINE [Suspect]
     Indication: PROPHYLAXIS OF NAUSEA AND VOMITING
     Dosage: 150 mg, Once
     Route: 041
     Dates: start: 20120409, end: 20120409
  2. ALOXI [Concomitant]
     Dates: start: 20120409, end: 20120409
  3. FARMORUBICIN [Concomitant]
     Indication: BREAST CANCER
     Dates: start: 20120409, end: 20120409
  4. ENDOXAN [Concomitant]
     Indication: BREAST CANCER
     Dates: start: 20120409, end: 20120409
  5. DECADRON (DEXAMETHASONE SODIUM PHOSPHATE) [Concomitant]
     Dates: start: 20120409, end: 20120409

REACTIONS (3)
  - Injection site erythema [Unknown]
  - Injection site pain [Unknown]
  - Injection site induration [Unknown]
